FAERS Safety Report 9001320 (Version 1)
Quarter: 2013Q1

REPORT INFORMATION
  Report Type: Spontaneous
  Country: US (occurrence: US)
  Receive Date: 20130107
  Receipt Date: 20130107
  Transmission Date: 20140127
  Serious: Yes (Death)
  Sender: FDA-Public Use
  Company Number: US-ASTRAZENECA-2013SE00678

PATIENT
  Age: 58 Year
  Sex: Female

DRUGS (5)
  1. OMEPRAZOLE [Suspect]
     Route: 048
  2. CLOPIDOGREL [Suspect]
     Route: 048
  3. DULOXETINE [Suspect]
     Route: 048
  4. ACETAMINOPHEN/CAFFEINE/SALICYLATE [Suspect]
  5. CARDIAC GLYCOSIDE [Suspect]
     Route: 048

REACTIONS (3)
  - Completed suicide [Fatal]
  - Toxicity to various agents [Fatal]
  - Cardio-respiratory arrest [Fatal]
